FAERS Safety Report 6903304-3 (Version None)
Quarter: 2010Q3

REPORT INFORMATION
  Report Type: 
  Country: None (occurrence: None)
  Receive Date: 20100803
  Receipt Date: 20080919
  Transmission Date: 20110219
  Serious: No
  Sender: FDA-Public Use
  Company Number: US-PFIZER INC-2008080168

PATIENT
  Sex: Female
  Weight: 56.8 kg

DRUGS (3)
  1. LYRICA [Suspect]
     Indication: FIBROMYALGIA
     Route: 048
     Dates: start: 20080904, end: 20080916
  2. TRAMADOL HCL [Suspect]
     Indication: FIBROMYALGIA
     Route: 048
     Dates: start: 20080904, end: 20080916
  3. ANALGESICS [Concomitant]

REACTIONS (7)
  - BLOOD TEST ABNORMAL [None]
  - DIARRHOEA [None]
  - FATIGUE [None]
  - JOINT SWELLING [None]
  - MOOD SWINGS [None]
  - OEDEMA PERIPHERAL [None]
  - PAIN [None]
